FAERS Safety Report 6216803-7 (Version None)
Quarter: 2009Q2

REPORT INFORMATION
  Report Type: 
  Country: None (occurrence: None)
  Receive Date: 20090605
  Receipt Date: 20090529
  Transmission Date: 20091009
  Serious: Yes (Hospitalization)
  Sender: FDA-Public Use
  Company Number: JP-EISAI INC.-E2090-00736-SPO-JP

PATIENT
  Sex: Female

DRUGS (3)
  1. EXCEGRAN [Suspect]
     Indication: EPILEPSY
     Route: 048
     Dates: start: 20071209, end: 20080107
  2. TEGRETOL [Concomitant]
  3. DEPAKENE [Concomitant]
     Dates: start: 20071101

REACTIONS (1)
  - STEVENS-JOHNSON SYNDROME [None]
